FAERS Safety Report 8196679-1 (Version None)
Quarter: 2012Q1

REPORT INFORMATION
  Report Type: 
  Country: None (occurrence: None)
  Receive Date: 20120309
  Receipt Date: 20120301
  Transmission Date: 20120608
  Serious: Yes (Life-Threatening, Hospitalization, Other)
  Sender: FDA-Public Use
  Company Number: US-BAYER-2011-027261

PATIENT
  Age: 47 Year
  Sex: Female
  Weight: 92.971 kg

DRUGS (12)
  1. YASMIN [Suspect]
     Dosage: UNK
     Route: 048
     Dates: start: 20020101, end: 20020726
  2. BACLOFEN [Concomitant]
     Dosage: 5 MG, TID
  3. SYNTHROID [Concomitant]
     Dosage: UNK
     Route: 048
     Dates: start: 19980101
  4. SINGULAIR [Concomitant]
  5. INTERFERON BETA NOS [Concomitant]
  6. ALLEGRA [Concomitant]
     Dosage: 60 MG, UNK
  7. TOPAMAX [Concomitant]
     Dosage: UNK
     Route: 048
     Dates: start: 20000101
  8. ZYRTEC-D 12 HOUR [Concomitant]
  9. CIMETIDINE [Concomitant]
     Dosage: 300 MG, QD
  10. ZYRTEC [Concomitant]
     Dosage: 10 MG, HS
  11. RHINOCORT [Concomitant]
  12. ALBUTEROL [Concomitant]

REACTIONS (10)
  - PAIN [None]
  - PLEURITIC PAIN [None]
  - PULMONARY FIBROSIS [None]
  - PAIN IN EXTREMITY [None]
  - OEDEMA PERIPHERAL [None]
  - SKIN DISCOLOURATION [None]
  - PULMONARY HYPERTENSION [None]
  - PULMONARY EMBOLISM [None]
  - DYSPNOEA [None]
  - DEEP VEIN THROMBOSIS [None]
